FAERS Safety Report 6844833-0 (Version None)
Quarter: 2010Q3

REPORT INFORMATION
  Report Type: 
  Country: None (occurrence: None)
  Receive Date: 20100715
  Receipt Date: 20100701
  Transmission Date: 20110219
  Serious: Yes (Other)
  Sender: FDA-Public Use
  Company Number: IL-MYLANLABS-2010S1011765

PATIENT
  Age: 38 Year
  Sex: Female

DRUGS (6)
  1. EPIPEN [Suspect]
     Route: 058
  2. EPIPEN [Suspect]
     Route: 058
  3. SALBUTAMOL SULFATE [Suspect]
     Indication: ASTHMA
     Route: 055
  4. METHYLPREDISOLONE [Suspect]
     Indication: ASTHMA
     Route: 042
  5. IPRATROPIUM BROMIDE [Suspect]
  6. FLUTICASONE PROPIONATE W/SALMETEROL [Concomitant]

REACTIONS (6)
  - ELECTROCARDIOGRAM ABNORMAL [None]
  - MYOCARDIAL INFARCTION [None]
  - RESPIRATORY DISTRESS [None]
  - TACHYCARDIA [None]
  - TACHYPNOEA [None]
  - TROPONIN INCREASED [None]
